FAERS Safety Report 5511648-5 (Version None)
Quarter: 2007Q4

REPORT INFORMATION
  Report Type: 
  Country: None (occurrence: None)
  Receive Date: 20071109
  Receipt Date: 20071026
  Transmission Date: 20080405
  Serious: Yes (Hospitalization)
  Sender: FDA-Public Use
  Company Number: GB-RANBAXY-2007RR-11093

PATIENT

DRUGS (4)
  1. TERBINAFINE HCL [Suspect]
  2. AMLODIPINE [Concomitant]
     Indication: HYPERTENSION
     Dosage: 10 MG, UNK
     Route: 048
  3. CARBIMAZOLE [Concomitant]
     Indication: HYPOTHYROIDISM
     Dosage: 5 MG, UNK
     Route: 048
  4. DOXAZOSIN 4MG TABLETS [Concomitant]
     Dosage: 4 MG, UNK
     Route: 048

REACTIONS (2)
  - HAEMATEMESIS [None]
  - MALLORY-WEISS SYNDROME [None]
